FAERS Safety Report 8891186 (Version 1)
Quarter: 2012Q4

REPORT INFORMATION
  Report Type: 
  Country: US (occurrence: US)
  Receive Date: 20121107
  Receipt Date: 20121107
  Transmission Date: 20130627
  Serious: Yes (Hospitalization, Other)
  Sender: FDA-Public Use
  Company Number: US-PFIZER INC-2012277167

PATIENT
  Age: 67 Year
  Sex: Female
  Weight: 134 kg

DRUGS (3)
  1. CHAPSTICK OVERNIGHT [Suspect]
     Indication: DRYNESS OF LIPS
     Dosage: UNK, as needed
     Dates: start: 200908
  2. CHAPSTICK LIPMOISTURIZER [Suspect]
     Indication: DRYNESS OF LIPS
     Dosage: UNK, as needed
     Dates: start: 2012, end: 2012
  3. LISINOPRIL [Concomitant]
     Indication: BLOOD PRESSURE ABNORMAL
     Dosage: 10 mg, 2x/day

REACTIONS (2)
  - Lip and/or oral cavity cancer [Unknown]
  - Drug ineffective [Unknown]
